FAERS Safety Report 19694192 (Version 1)
Quarter: 2021Q3

REPORT INFORMATION
  Report Type: Spontaneous
  Country: ZA (occurrence: ZA)
  Receive Date: 20210813
  Receipt Date: 20210813
  Transmission Date: 20211014
  Serious: Yes (Hospitalization)
  Sender: FDA-Public Use
  Company Number: ZA-NOVOPROD-836689

PATIENT
  Age: 57 Year
  Sex: Female

DRUGS (1)
  1. ESTROFEM (ESTRADIOL HEMIHYDRATE) [Suspect]
     Active Substance: ESTRADIOL HEMIHYDRATE
     Indication: HORMONE THERAPY
     Dosage: 2 MG
     Route: 048

REACTIONS (2)
  - Appendicectomy [Unknown]
  - Cholecystectomy [Unknown]
